FAERS Safety Report 23721468 (Version 2)
Quarter: 2024Q2

REPORT INFORMATION
  Report Type: Report from Study
  Country: US (occurrence: US)
  Receive Date: 20240409
  Receipt Date: 20240510
  Transmission Date: 20240716
  Serious: Yes (Hospitalization, Other)
  Sender: FDA-Public Use
  Company Number: US-UCBSA-2024016883

PATIENT
  Age: 42 Year
  Sex: Male

DRUGS (1)
  1. BIMEKIZUMAB [Suspect]
     Active Substance: BIMEKIZUMAB
     Indication: Psoriasis
     Dosage: 320 MILLIGRAM, EV 4 WEEKS BY AUTO INJECTOR (SAMPLE AT DR OFFICE)
     Route: 058
     Dates: start: 20240325

REACTIONS (2)
  - Appendicitis [Recovering/Resolving]
  - Appendicectomy [Recovering/Resolving]

NARRATIVE: CASE EVENT DATE: 20240328
